FAERS Safety Report 8126620-9 (Version None)
Quarter: 2012Q1

REPORT INFORMATION
  Report Type: 
  Country: None (occurrence: None)
  Receive Date: 20120210
  Receipt Date: 20120201
  Transmission Date: 20120608
  Serious: No
  Sender: FDA-Public Use
  Company Number: US-BIOGENIDEC-2011BI027906

PATIENT
  Sex: Male

DRUGS (1)
  1. TYSABRI [Suspect]
     Indication: MULTIPLE SCLEROSIS
     Route: 042
     Dates: start: 20100625

REACTIONS (5)
  - VISUAL IMPAIRMENT [None]
  - BALANCE DISORDER [None]
  - DRUG EFFECT DECREASED [None]
  - TEMPERATURE INTOLERANCE [None]
  - FATIGUE [None]
